FAERS Safety Report 9703685 (Version 2)
Quarter: 2015Q1

REPORT INFORMATION
  Report Type: Spontaneous
  Country: TR (occurrence: TR)
  Receive Date: 20131122
  Receipt Date: 20150226
  Transmission Date: 20150721
  Serious: Yes (Other)
  Sender: FDA-Public Use
  Company Number: TR-RANBAXY-2013R1-75294

PATIENT
  Age: 25 Year
  Sex: Female

DRUGS (1)
  1. ISOTRETINOIN [Suspect]
     Active Substance: ISOTRETINOIN
     Indication: ACNE
     Dosage: 30 MG, DAILY (0.5 MG/KG)
     Route: 048

REACTIONS (5)
  - Dyspareunia [Recovered/Resolved]
  - Cheilitis [Recovered/Resolved]
  - Xerosis [Recovered/Resolved]
  - Vaginal haemorrhage [Recovered/Resolved]
  - Dry eye [Recovered/Resolved]
